FAERS Safety Report 9705071 (Version 1)
Quarter: 2013Q4

REPORT INFORMATION
  Report Type: Spontaneous
  Country: GB (occurrence: GB)
  Receive Date: 20131122
  Receipt Date: 20131122
  Transmission Date: 20140711
  Serious: Yes (Hospitalization)
  Sender: FDA-Public Use
  Company Number: GB-ACTAVIS-2013-21467

PATIENT
  Age: 45 Year
  Sex: Female
  Weight: 65 kg

DRUGS (4)
  1. DOCETAXEL (UNKNOWN) [Suspect]
     Indication: BREAST CANCER
     Dosage: 130 MG, 3/WEEK
     Route: 042
     Dates: start: 20120914
  2. CARBOPLATIN (UNKNOWN) [Suspect]
     Indication: BREAST CANCER
     Dosage: 760 MBQ, 3/WEEK
     Route: 042
     Dates: start: 20120914
  3. HERCEPTIN [Suspect]
     Indication: BREAST CANCER
     Dosage: 5145 MG, 3/WEEK
     Route: 042
     Dates: start: 20120914
  4. PIRITON [Concomitant]
     Indication: PRODUCT USED FOR UNKNOWN INDICATION
     Dosage: UNK
     Route: 065
     Dates: start: 20120922, end: 20120922

REACTIONS (1)
  - Neutropenic sepsis [Recovered/Resolved]
